FAERS Safety Report 9473063 (Version 1)
Quarter: 2013Q3

REPORT INFORMATION
  Report Type: Spontaneous
  Country: US (occurrence: US)
  Receive Date: 20130823
  Receipt Date: 20130823
  Transmission Date: 20140515
  Serious: Yes (Other)
  Sender: FDA-Public Use
  Company Number: US-BRISTOL-MYERS SQUIBB COMPANY-17393273

PATIENT
  Age: 58 Year
  Sex: Female

DRUGS (4)
  1. SPRYCEL [Suspect]
     Indication: CHRONIC MYELOID LEUKAEMIA
     Dates: start: 20130201
  2. LIPITOR [Concomitant]
  3. FOLIC ACID [Concomitant]
  4. VITAMIN D [Concomitant]

REACTIONS (4)
  - White blood cell count decreased [Unknown]
  - Neutropenia [Unknown]
  - Swelling face [Unknown]
  - Diarrhoea [Not Recovered/Not Resolved]
